FAERS Safety Report 9821578 (Version 3)
Quarter: 2014Q1

REPORT INFORMATION
  Report Type: Spontaneous
  Country: US (occurrence: US)
  Receive Date: 20140116
  Receipt Date: 20140203
  Transmission Date: 20141002
  Serious: Yes (Hospitalization)
  Sender: FDA-Public Use
  Company Number: US-UCBSA-096671

PATIENT
  Age: 63 Year
  Sex: Male

DRUGS (2)
  1. CIMZIA [Suspect]
     Indication: CROHN^S DISEASE
     Dates: start: 20081023, end: 2013
  2. CIMZIA [Suspect]
     Indication: CROHN^S DISEASE
     Dosage: EXPIRATION DATE: ??-FEB-2016
     Dates: start: 20130819

REACTIONS (4)
  - Pneumonia [Recovered/Resolved]
  - Dehydration [Not Recovered/Not Resolved]
  - Unresponsive to stimuli [Not Recovered/Not Resolved]
  - Inappropriate schedule of drug administration [Recovered/Resolved]
